FAERS Safety Report 5125952-6 (Version None)
Quarter: 2006Q4

REPORT INFORMATION
  Report Type: 
  Country: None (occurrence: None)
  Receive Date: 20061012
  Receipt Date: 20060825
  Transmission Date: 20070319
  Serious: Yes (Hospitalization, Other)
  Sender: FDA-Public Use
  Company Number: PHEH2006US11037

PATIENT
  Age: 54 Year
  Sex: Male

DRUGS (12)
  1. NEORAL [Suspect]
     Indication: RENAL AND PANCREAS TRANSPLANT
     Dosage: 50 MG, BID
     Route: 048
     Dates: start: 20060701
  2. NEORAL [Suspect]
     Dosage: UNK, UNK
     Route: 048
     Dates: start: 20040101
  3. IMURAN [Concomitant]
     Dosage: 50-100 MG/DAY
  4. PREDNISONE TAB [Concomitant]
  5. VYTORIN [Concomitant]
  6. ASPIRIN [Concomitant]
  7. SYNTHROID [Concomitant]
  8. CLONIDINE [Concomitant]
  9. LYRICA [Concomitant]
  10. BENICAR [Concomitant]
  11. KEPPRA [Concomitant]
  12. PHENOBARBITAL TAB [Concomitant]

REACTIONS (10)
  - ASTROCYTOMA [None]
  - CHILLS [None]
  - DIABETES MELLITUS [None]
  - KIDNEY TRANSPLANT REJECTION [None]
  - LUNG NEOPLASM [None]
  - NEPHROPATHY TOXIC [None]
  - NEUROPATHY [None]
  - PULMONARY CALCIFICATION [None]
  - PULMONARY GRANULOMA [None]
  - VIRUS SEROLOGY TEST POSITIVE [None]
